FAERS Safety Report 19920547 (Version 2)
Quarter: 2022Q1

REPORT INFORMATION
  Report Type: Spontaneous
  Country: GB (occurrence: GB)
  Receive Date: 20211006
  Receipt Date: 20220302
  Transmission Date: 20220424
  Serious: Yes (Other)
  Sender: FDA-Public Use
  Company Number: GB-MHRA-EYC 00260294

PATIENT
  Age: 72 Year
  Sex: Male
  Weight: 79 kg

DRUGS (5)
  1. TAMSULOSIN [Suspect]
     Active Substance: TAMSULOSIN
     Indication: Prostatic disorder
     Dosage: 400 MILLIGRAM
     Route: 048
     Dates: start: 202104, end: 20210825
  2. FINASTERIDE [Concomitant]
     Active Substance: FINASTERIDE
     Indication: Ill-defined disorder
     Dosage: UNK
     Route: 065
  3. LOSARTAN [Concomitant]
     Active Substance: LOSARTAN
     Indication: Ill-defined disorder
     Dosage: UNK
     Route: 065
  4. ISOSORBIDE MONONITRATE [Concomitant]
     Active Substance: ISOSORBIDE MONONITRATE
     Indication: Ill-defined disorder
     Dosage: UNK
     Route: 065
  5. OMEPRAZOLE [Concomitant]
     Active Substance: OMEPRAZOLE
     Indication: Ill-defined disorder
     Dosage: UNK
     Route: 065

REACTIONS (2)
  - Penis disorder [Not Recovered/Not Resolved]
  - Erectile dysfunction [Not Recovered/Not Resolved]

NARRATIVE: CASE EVENT DATE: 20210409
